FAERS Safety Report 7713612-4 (Version None)
Quarter: 2011Q3

REPORT INFORMATION
  Report Type: 
  Country: None (occurrence: None)
  Receive Date: 20110826
  Receipt Date: 20110818
  Transmission Date: 20111222
  Serious: Yes (Other)
  Sender: FDA-Public Use
  Company Number: US-US-EMD SERONO, INC.-7077980

PATIENT
  Sex: Female

DRUGS (1)
  1. REBIF [Suspect]
     Indication: MULTIPLE SCLEROSIS
     Route: 058
     Dates: start: 20110510

REACTIONS (6)
  - FEELING HOT [None]
  - HYPERHIDROSIS [None]
  - INJECTION SITE REACTION [None]
  - PAPILLOMA VIRAL INFECTION [None]
  - INJECTION SITE PAIN [None]
  - WHITE BLOOD CELL COUNT INCREASED [None]
